FAERS Safety Report 5503910-7 (Version None)
Quarter: 2007Q4

REPORT INFORMATION
  Report Type: 
  Country: None (occurrence: None)
  Receive Date: 20071101
  Receipt Date: 20071023
  Transmission Date: 20080405
  Serious: Yes (Other)
  Sender: FDA-Public Use
  Company Number: BR-GILEAD-2007-0013942

PATIENT
  Sex: Male
  Weight: 4.1 kg

DRUGS (4)
  1. TENOFOVIR DISOPROXIL FUMARATE [Suspect]
     Indication: PROPHYLAXIS AGAINST HIV INFECTION
     Route: 064
     Dates: start: 20070923, end: 20070923
  2. ZIDOVUDINE [Concomitant]
     Indication: PROPHYLAXIS AGAINST HIV INFECTION
     Route: 048
     Dates: start: 20070823, end: 20070928
  3. ZIDOVUDINE [Concomitant]
     Route: 064
     Dates: end: 20070823
  4. TOBRAMYCIN [Concomitant]
     Indication: CONJUNCTIVITIS
     Route: 061
     Dates: start: 20070916, end: 20070926

REACTIONS (1)
  - ANAEMIA [None]
